FAERS Safety Report 9280328 (Version 2)
Quarter: 2013Q3

REPORT INFORMATION
  Report Type: Spontaneous
  Country: US (occurrence: US)
  Receive Date: 20130509
  Receipt Date: 20130703
  Transmission Date: 20140515
  Serious: No
  Sender: FDA-Public Use
  Company Number: US-NAPPMUNDI-USA-2013-0101768

PATIENT
  Age: 75 Year
  Sex: Female
  Weight: 92.52 kg

DRUGS (4)
  1. OXYCONTIN TABLETS [Suspect]
     Indication: PAIN
     Dosage: 40 MG, Q12H
     Route: 048
  2. OXYCONTIN TABLETS [Suspect]
     Indication: ARTHRALGIA
  3. OXYCONTIN TABLETS [Suspect]
     Indication: SPINAL PAIN
  4. SYNTHROID [Concomitant]

REACTIONS (2)
  - Hypothyroidism [Unknown]
  - Respiratory disorder [Unknown]
